FAERS Safety Report 9904273 (Version 1)
Quarter: 2014Q1

REPORT INFORMATION
  Report Type: Spontaneous
  Country: FR (occurrence: FR)
  Receive Date: 20140218
  Receipt Date: 20140218
  Transmission Date: 20141002
  Serious: Yes (Other)
  Sender: FDA-Public Use
  Company Number: FR-ASTRAZENECA-2014SE10445

PATIENT
  Age: 20962 Day
  Sex: Female

DRUGS (7)
  1. XEROQUEL [Suspect]
     Indication: BIPOLAR DISORDER
     Route: 048
     Dates: start: 201307
  2. XEROQUEL [Suspect]
     Indication: BIPOLAR DISORDER
     Route: 048
     Dates: start: 201312
  3. LYSANXIA [Concomitant]
     Route: 048
  4. LEPTICUR [Concomitant]
     Route: 048
  5. TERALITHE [Concomitant]
     Route: 048
     Dates: start: 201203
  6. TERALITHE [Concomitant]
     Route: 048
  7. ABILIFY [Concomitant]
     Dates: end: 201304

REACTIONS (2)
  - Hepatocellular injury [Recovering/Resolving]
  - Vomiting [Recovered/Resolved]
